FAERS Safety Report 4951998-4 (Version None)
Quarter: 2006Q1

REPORT INFORMATION
  Report Type: 
  Country: None (occurrence: None)
  Receive Date: 20060323
  Receipt Date: 20050414
  Transmission Date: 20060701
  Serious: Yes (Hospitalization, Disabling)
  Sender: FDA-Public Use
  Company Number: US-MERCK-0504USA02848

PATIENT
  Age: 64 Year
  Sex: Male
  Weight: 114 kg

DRUGS (12)
  1. VIOXX [Suspect]
     Indication: ARTHRALGIA
     Route: 048
     Dates: start: 20010710, end: 20040930
  2. VIOXX [Suspect]
     Route: 048
     Dates: start: 20010710, end: 20040930
  3. ZESTRIL [Concomitant]
     Indication: HYPERTENSION
     Route: 065
  4. NORVASC [Concomitant]
     Indication: CARDIAC DISORDER
     Route: 048
  5. LASIX [Concomitant]
     Route: 065
  6. ECOTRIN [Concomitant]
     Route: 065
  7. NAPROXEN [Concomitant]
     Indication: ARTHRALGIA
     Route: 065
  8. LIPITOR [Concomitant]
     Indication: BLOOD CHOLESTEROL INCREASED
     Route: 048
  9. AVANDIA [Concomitant]
     Indication: DIABETES MELLITUS
     Route: 048
  10. SYNTHROID [Concomitant]
     Route: 048
  11. PLAVIX [Concomitant]
     Indication: ANTICOAGULANT THERAPY
     Route: 048
  12. GLUCOVANCE [Concomitant]
     Route: 065

REACTIONS (6)
  - BACK DISORDER [None]
  - BLOOD CHOLESTEROL INCREASED [None]
  - BLOOD TRIGLYCERIDES INCREASED [None]
  - DYSPEPSIA [None]
  - INJURY [None]
  - MYOCARDIAL INFARCTION [None]
